FAERS Safety Report 9387375 (Version 1)
Quarter: 2013Q3

REPORT INFORMATION
  Report Type: Spontaneous
  Country: US (occurrence: None)
  Receive Date: 20130702
  Receipt Date: 20130702
  Transmission Date: 20140515
  Serious: Yes (Life-Threatening, Other)
  Sender: FDA-Public Use
  Company Number: 1768850

PATIENT
  Age: 77 Year
  Sex: Female

DRUGS (1)
  1. MORPHINE SULFATE [Suspect]
     Dates: start: 20130523, end: 20130523

REACTIONS (3)
  - Lethargy [None]
  - Unresponsive to stimuli [None]
  - Pulse absent [None]
